FAERS Safety Report 7628873-X (Version None)
Quarter: 2011Q3

REPORT INFORMATION
  Report Type: 
  Country: None (occurrence: None)
  Receive Date: 20110722
  Receipt Date: 20110721
  Transmission Date: 20111222
  Serious: Yes (Hospitalization, Other)
  Sender: FDA-Public Use
  Company Number: US-BRISTOL-MYERS SQUIBB COMPANY-15871031

PATIENT
  Age: 89 Year
  Sex: Female

DRUGS (5)
  1. LASIX [Concomitant]
     Dosage: EVERY MORNING
  2. COUMADIN [Suspect]
     Indication: ATRIAL FIBRILLATION
  3. LOVENOX [Suspect]
  4. COUMADIN [Suspect]
     Indication: CARDIAC FAILURE CONGESTIVE
  5. TOPROL-XL [Concomitant]

REACTIONS (2)
  - HIP SURGERY [None]
  - SPINAL CORD DISORDER [None]
